FAERS Safety Report 4751156-2 (Version None)
Quarter: 2005Q3

REPORT INFORMATION
  Report Type: 
  Country: None (occurrence: None)
  Receive Date: 20050822
  Receipt Date: 20050812
  Transmission Date: 20060218
  Serious: Yes (Hospitalization)
  Sender: FDA-Public Use
  Company Number: 05H-163-0302028-00

PATIENT
  Age: 51 Year
  Sex: Male

DRUGS (1)
  1. VANCOMYCIN HCL [Suspect]
     Indication: OSTEOMYELITIS
     Dosage: 1 GM, EVERY 12 HOURS, INTRAVENOUS
     Route: 042
     Dates: start: 20050728, end: 20050803

REACTIONS (11)
  - ASTHENIA [None]
  - DIFFICULTY IN WALKING [None]
  - DRUG HYPERSENSITIVITY [None]
  - FEELING ABNORMAL [None]
  - HEPATIC FAILURE [None]
  - OEDEMA PERIPHERAL [None]
  - PAIN [None]
  - PRURITUS [None]
  - RASH GENERALISED [None]
  - RENAL FAILURE [None]
  - THROMBOSIS [None]
